FAERS Safety Report 5699771-6 (Version None)
Quarter: 2008Q2

REPORT INFORMATION
  Report Type: 
  Country: None (occurrence: None)
  Receive Date: 20080410
  Receipt Date: 20080410
  Transmission Date: 20081010
  Serious: Yes (Death, Life-Threatening)
  Sender: FDA-Public Use
  Company Number: None

PATIENT
  Age: 66 Year
  Sex: Female
  Weight: 72.5755 kg

DRUGS (1)
  1. HEPARIN [Suspect]
     Indication: THROMBOSIS
     Dosage: HEPARIN VARIOUS IV BOLUS
     Route: 040
     Dates: start: 20070919, end: 20071010

REACTIONS (8)
  - DEPRESSED LEVEL OF CONSCIOUSNESS [None]
  - GENERAL PHYSICAL HEALTH DETERIORATION [None]
  - HYPOTENSION [None]
  - MALAISE [None]
  - NAUSEA [None]
  - SHOCK [None]
  - SURGERY [None]
  - THERAPEUTIC PRODUCT CONTAMINATION [None]
